FAERS Safety Report 13574410 (Version 2)
Quarter: 2017Q2

REPORT INFORMATION
  Report Type: Spontaneous
  Country: US (occurrence: US)
  Receive Date: 20170523
  Receipt Date: 20170601
  Transmission Date: 20170830
  Serious: Yes (Hospitalization)
  Sender: FDA-Public Use
  Company Number: US-VERTEX PHARMACEUTICALS-2017-002712

PATIENT
  Age: 9 Year
  Sex: Male

DRUGS (16)
  1. ORKAMBI [Suspect]
     Active Substance: IVACAFTOR\LUMACAFTOR
     Indication: CYSTIC FIBROSIS
     Dosage: UNK, BID
     Route: 048
     Dates: start: 201611
  2. SINGULAIR [Concomitant]
     Active Substance: MONTELUKAST SODIUM
  3. PULMOZYME [Concomitant]
     Active Substance: DORNASE ALFA
  4. ATROVENT [Concomitant]
     Active Substance: IPRATROPIUM BROMIDE
  5. ERYTHROCIN [Concomitant]
     Active Substance: ERYTHROMYCIN LACTOBIONATE
  6. ALBUTEROL SULFATE. [Concomitant]
     Active Substance: ALBUTEROL SULFATE
  7. CAYSTON [Concomitant]
     Active Substance: AZTREONAM
  8. PULMICORT TURBUHALER [Concomitant]
     Active Substance: BUDESONIDE
  9. VITAMIN D [Concomitant]
     Active Substance: CHOLECALCIFEROL
  10. HYPERSALINE [Concomitant]
  11. CYPROHEPTADINE. [Concomitant]
     Active Substance: CYPROHEPTADINE
  12. TOBI [Concomitant]
     Active Substance: TOBRAMYCIN
  13. VITAMIN K [Concomitant]
     Active Substance: PHYTONADIONE
  14. NASONEX [Concomitant]
     Active Substance: MOMETASONE FUROATE
  15. ADVAIR HFA [Concomitant]
     Active Substance: FLUTICASONE PROPIONATE\SALMETEROL XINAFOATE
  16. ZYRTEC [Concomitant]
     Active Substance: CETIRIZINE HYDROCHLORIDE

REACTIONS (2)
  - Thrombosis in device [Unknown]
  - Infective pulmonary exacerbation of cystic fibrosis [Unknown]

NARRATIVE: CASE EVENT DATE: 201705
